FAERS Safety Report 26045012 (Version 1)
Quarter: 2025Q4

REPORT INFORMATION
  Report Type: Spontaneous
  Country: TR (occurrence: TR)
  Receive Date: 20251114
  Receipt Date: 20251114
  Transmission Date: 20260118
  Serious: Yes (Other)
  Sender: UNICHEM
  Company Number: TR-UNICHEM LABORATORIES LIMITED-UNI-2025-TR-003738

PATIENT

DRUGS (1)
  1. METRONIDAZOLE [Suspect]
     Active Substance: METRONIDAZOLE
     Indication: Gastroenteritis
     Dosage: UNK
     Route: 065

REACTIONS (1)
  - Neurotoxicity [Recovering/Resolving]
